FAERS Safety Report 5414638-6 (Version None)
Quarter: 2007Q3

REPORT INFORMATION
  Report Type: 
  Country: None (occurrence: None)
  Receive Date: 20070813
  Receipt Date: 20070731
  Transmission Date: 20080115
  Serious: Yes (Other)
  Sender: FDA-Public Use
  Company Number: 013025

PATIENT
  Age: 46 Year
  Sex: Female

DRUGS (9)
  1. PRIALT [Suspect]
     Indication: POST LAMINECTOMY SYNDROME
     Dosage: SEE IMAGE
     Route: 037
     Dates: start: 20060101, end: 20061222
  2. PRIALT [Suspect]
     Indication: POST LAMINECTOMY SYNDROME
     Dosage: SEE IMAGE
     Route: 037
     Dates: start: 20061222, end: 20070216
  3. PRIALT [Suspect]
     Indication: POST LAMINECTOMY SYNDROME
     Dosage: SEE IMAGE
     Route: 037
     Dates: start: 20070216, end: 20070406
  4. PRIALT [Suspect]
     Indication: POST LAMINECTOMY SYNDROME
     Dosage: SEE IMAGE
     Route: 037
     Dates: start: 20070406, end: 20070703
  5. PRIALT [Suspect]
     Indication: POST LAMINECTOMY SYNDROME
     Dosage: SEE IMAGE
     Route: 037
     Dates: start: 20061016
  6. PERCOCET [Concomitant]
  7. LIDODERM [Concomitant]
  8. VALIUM /00017001/ (DIZEPAM) [Concomitant]
  9. MORPHINE [Concomitant]

REACTIONS (19)
  - ABDOMINAL DISTENSION [None]
  - BACK PAIN [None]
  - CHEST DISCOMFORT [None]
  - CONFUSIONAL STATE [None]
  - CONSTIPATION [None]
  - DIABETES MELLITUS [None]
  - DIZZINESS [None]
  - FEELING ABNORMAL [None]
  - GLAUCOMA [None]
  - MEMORY IMPAIRMENT [None]
  - MOOD SWINGS [None]
  - MUSCLE SPASMS [None]
  - MUSCULOSKELETAL PAIN [None]
  - PAIN IN EXTREMITY [None]
  - PARAESTHESIA [None]
  - PROCTALGIA [None]
  - TOOTH DISCOLOURATION [None]
  - URINARY RETENTION [None]
  - VISION BLURRED [None]
